FAERS Safety Report 8923748 (Version 1)
Quarter: 2012Q4

REPORT INFORMATION
  Report Type: Report from Study
  Country: CA (occurrence: CA)
  Receive Date: 20121126
  Receipt Date: 20121126
  Transmission Date: 20130627
  Serious: Yes (Other)
  Sender: FDA-Public Use
  Company Number: CA-JNJFOC-20121109771

PATIENT
  Sex: Male
  Weight: 126.2 kg

DRUGS (14)
  1. REMICADE [Suspect]
     Indication: CROHN^S DISEASE
     Route: 042
  2. PANTOPRAZOLE [Concomitant]
     Route: 065
  3. ALLOPURINOL [Concomitant]
     Route: 065
  4. FOLIC ACID [Concomitant]
     Route: 065
  5. ALENDRONATE [Concomitant]
     Route: 065
  6. RAMIPRIL [Concomitant]
     Route: 065
  7. HYDROCHLOROTHIAZIDE [Concomitant]
     Route: 065
  8. VIT D [Concomitant]
     Route: 065
  9. ATROVENT [Concomitant]
     Route: 065
  10. VITAMIN B12 [Concomitant]
     Route: 065
  11. METOPROLOL [Concomitant]
     Route: 065
  12. FLOVENT [Concomitant]
     Route: 065
  13. MAGNESIUM GLUCONATE [Concomitant]
     Route: 065
  14. IRON [Concomitant]
     Route: 065

REACTIONS (1)
  - Adrenal neoplasm [Not Recovered/Not Resolved]
